FAERS Safety Report 9816604 (Version 1)
Quarter: 2014Q1

REPORT INFORMATION
  Report Type: Spontaneous
  Country: US (occurrence: US)
  Receive Date: 20140114
  Receipt Date: 20140114
  Transmission Date: 20141002
  Serious: Yes (Death)
  Sender: FDA-Public Use
  Company Number: US-PFIZER INC-2014007337

PATIENT
  Age: 15 Year
  Sex: Male

DRUGS (4)
  1. MORPHINE SULFATE [Suspect]
  2. SERTRALINE HCL [Suspect]
  3. DIPHENHYDRAMINE [Suspect]
  4. CLONAZEPAM [Suspect]

REACTIONS (1)
  - Death [Fatal]
